FAERS Safety Report 9355789 (Version 1)
Quarter: 2013Q2

REPORT INFORMATION
  Report Type: Spontaneous
  Country: US (occurrence: US)
  Receive Date: 20130619
  Receipt Date: 20130619
  Transmission Date: 20140414
  Serious: Yes (Hospitalization, Other)
  Sender: FDA-Public Use
  Company Number: PHHY2013US060889

PATIENT
  Age: 60 Year
  Sex: Female

DRUGS (5)
  1. GABAPENTIN [Suspect]
  2. ZOLPIDEM [Suspect]
  3. DIPHENHYDRAMINE [Suspect]
  4. DEXTROMETHORPHAN [Suspect]
  5. ALCOHOL [Suspect]

REACTIONS (4)
  - Delirium [Unknown]
  - Hyponatraemia [Unknown]
  - Ataxia [Unknown]
  - Drug abuse [Unknown]
